FAERS Safety Report 9785387 (Version 1)
Quarter: 2013Q4

REPORT INFORMATION
  Report Type: Spontaneous
  Country: IT (occurrence: IT)
  Receive Date: 20131227
  Receipt Date: 20131227
  Transmission Date: 20140711
  Serious: Yes (Other)
  Sender: FDA-Public Use
  Company Number: IT-JNJFOC-20131214598

PATIENT
  Age: 16 Year
  Sex: Female

DRUGS (1)
  1. REMICADE [Suspect]
     Indication: TAKAYASU^S ARTERITIS
     Route: 042
     Dates: start: 20130205, end: 20130205

REACTIONS (6)
  - Dyspnoea [Recovered/Resolved]
  - Urticaria [Recovered/Resolved]
  - Agitation [Recovered/Resolved]
  - Nausea [Recovered/Resolved]
  - Infusion related reaction [Recovered/Resolved]
  - Off label use [Unknown]
